FAERS Safety Report 25774675 (Version 1)
Quarter: 2025Q3

REPORT INFORMATION
  Report Type: Spontaneous
  Country: US (occurrence: US)
  Receive Date: 20250908
  Receipt Date: 20250908
  Transmission Date: 20251021
  Serious: Yes (Life-Threatening, Hospitalization, Other)
  Sender: PFIZER
  Company Number: US-MLMSERVICE-20250821-PI621330-00165-1

PATIENT
  Age: 72 Year
  Sex: Female

DRUGS (13)
  1. GEMCITABINE HYDROCHLORIDE [Suspect]
     Active Substance: GEMCITABINE HYDROCHLORIDE
     Indication: Pancreatic carcinoma metastatic
  2. GEMCITABINE HYDROCHLORIDE [Suspect]
     Active Substance: GEMCITABINE HYDROCHLORIDE
     Dosage: 600 MG/M2, 1X/DAY (DOSE REDUCTIONS)
  3. PACLITAXEL [Concomitant]
     Active Substance: PACLITAXEL
     Indication: Pancreatic carcinoma metastatic
  4. PACLITAXEL [Concomitant]
     Active Substance: PACLITAXEL
     Dosage: 75 MG/M2, 1X/DAY (DOSE REDUCTIONS)
  5. LEUCOVORIN [Concomitant]
     Active Substance: LEUCOVORIN\LEUCOVORIN CALCIUM
  6. FLUOROURACIL [Concomitant]
     Active Substance: FLUOROURACIL
  7. IRINOTECAN [Concomitant]
     Active Substance: IRINOTECAN
  8. OXALIPLATIN [Concomitant]
     Active Substance: OXALIPLATIN
  9. ECULIZUMAB [Concomitant]
     Active Substance: ECULIZUMAB
     Indication: Prophylaxis
     Dosage: 900 MG, WEEKLY (FOR FOUR WEEKLY)
     Route: 042
  10. APIXABAN [Concomitant]
     Active Substance: APIXABAN
     Indication: Pulmonary mass
  11. APIXABAN [Concomitant]
     Active Substance: APIXABAN
     Indication: Pulmonary embolism
  12. LOSARTAN [Concomitant]
     Active Substance: LOSARTAN
     Indication: Blood pressure management
  13. LOSARTAN [Concomitant]
     Active Substance: LOSARTAN
     Indication: Proteinuria

REACTIONS (2)
  - Arteriosclerosis [Recovered/Resolved]
  - Thrombotic microangiopathy [Recovered/Resolved]
